FAERS Safety Report 6173983-X (Version None)
Quarter: 2009Q2

REPORT INFORMATION
  Report Type: 
  Country: None (occurrence: None)
  Receive Date: 20090430
  Receipt Date: 20090430
  Transmission Date: 20091009
  Serious: Yes (Hospitalization, Other)
  Sender: FDA-Public Use
  Company Number: DE-PFIZER INC-2008096201

PATIENT

DRUGS (1)
  1. TOVIAZ [Suspect]
     Indication: POLLAKIURIA
     Route: 048
     Dates: start: 20081014, end: 20081015

REACTIONS (3)
  - HAEMORRHAGE [None]
  - PNEUMONIA [None]
  - URINARY RETENTION [None]
